FAERS Safety Report 11315737 (Version 1)
Quarter: 2015Q3

REPORT INFORMATION
  Report Type: Spontaneous
  Country: US (occurrence: None)
  Receive Date: 20150724
  Receipt Date: 20150724
  Transmission Date: 20151125
  Serious: Yes (Other)
  Sender: FDA-Public Use
  Company Number: COL_20242_2015

PATIENT
  Age: 51 Year
  Sex: Male

DRUGS (1)
  1. SPEED STICK POWER FRESH [Suspect]
     Active Substance: ALUMINUM ZIRCONIUM TETRACHLOROHYDREX GLY
     Indication: PRODUCT USED FOR UNKNOWN INDICATION
     Route: 061

REACTIONS (5)
  - Hyperhidrosis [None]
  - Cerebrovascular accident [None]
  - Condition aggravated [None]
  - Metal poisoning [None]
  - Skin odour abnormal [None]
